FAERS Safety Report 22848441 (Version 2)
Quarter: 2024Q4

REPORT INFORMATION
  Report Type: Report from Study
  Country: US (occurrence: US)
  Receive Date: 20230822
  Receipt Date: 20241025
  Transmission Date: 20250115
  Serious: Yes (Other)
  Sender: NOVARTIS
  Company Number: US-002147023-NVSC2023US181137

PATIENT
  Sex: Female

DRUGS (2)
  1. ENTRESTO [Suspect]
     Active Substance: SACUBITRIL\VALSARTAN
     Indication: Product used for unknown indication
     Dosage: 24 MG OF SACUBITRIL AND 26 MG OF VALSARTAN, QD
     Route: 048
  2. ENTRESTO [Suspect]
     Active Substance: SACUBITRIL\VALSARTAN
     Dosage: 49 MG OF SACUBITRIL AND 51 MG OF VALSARTAN, QD
     Route: 048

REACTIONS (2)
  - Haemorrhage urinary tract [Unknown]
  - Inappropriate schedule of product administration [Unknown]
